FAERS Safety Report 22103336 (Version 1)
Quarter: 2023Q1

REPORT INFORMATION
  Report Type: Spontaneous
  Country: US (occurrence: None)
  Receive Date: 20230315
  Receipt Date: 20230315
  Transmission Date: 20230418
  Serious: Yes (Hospitalization)
  Sender: FDA-Public Use
  Company Number: None

PATIENT
  Age: 49 Year
  Sex: Male
  Weight: 93 kg

DRUGS (3)
  1. SERTRALINE [Suspect]
     Active Substance: SERTRALINE HYDROCHLORIDE
     Indication: Post-traumatic stress disorder
     Dosage: FREQUENCY : DAILY;?
     Route: 048
     Dates: start: 20230227, end: 20230301
  2. BUPRENORPHINE [Suspect]
     Active Substance: BUPRENORPHINE
     Indication: Pain
     Dosage: FREQUENCY : TWICE A DAY;?
     Route: 060
     Dates: start: 20220701
  3. ZOFRAN [Suspect]
     Active Substance: ONDANSETRON HYDROCHLORIDE

REACTIONS (23)
  - Abdominal pain upper [None]
  - Vomiting [None]
  - Chills [None]
  - Tremor [None]
  - Pyrexia [None]
  - Palpitations [None]
  - Hypertension [None]
  - Diarrhoea [None]
  - Flushing [None]
  - Nausea [None]
  - Dysuria [None]
  - Urinary hesitation [None]
  - Chest discomfort [None]
  - Pallor [None]
  - Vomiting [None]
  - Myoclonus [None]
  - Hyperreflexia [None]
  - Serotonin syndrome [None]
  - Tachycardia [None]
  - Hypertransaminasaemia [None]
  - Clonus [None]
  - Dyspepsia [None]
  - Tremor [None]

NARRATIVE: CASE EVENT DATE: 20230301
